FAERS Safety Report 8175406-8 (Version None)
Quarter: 2012Q1

REPORT INFORMATION
  Report Type: 
  Country: None (occurrence: None)
  Receive Date: 20120229
  Receipt Date: 20120220
  Transmission Date: 20120608
  Serious: Yes (Hospitalization, Disabling, Other)
  Sender: FDA-Public Use
  Company Number: GB-ASTRAZENECA-2012SE11998

PATIENT
  Age: 47 Year
  Sex: Male

DRUGS (3)
  1. OMEPRAZOLE MAGNESIUM [Suspect]
     Route: 048
  2. DIHYDROCODEINE BITARTRATE INJ [Concomitant]
     Indication: PAIN IN EXTREMITY
  3. OMEPRAZOLE MAGNESIUM [Suspect]
     Indication: BARRETT'S OESOPHAGUS
     Route: 048

REACTIONS (8)
  - DYSPNOEA [None]
  - PAIN IN EXTREMITY [None]
  - DRY MOUTH [None]
  - ARTHRALGIA [None]
  - ASCITES [None]
  - PLEURAL EFFUSION [None]
  - ANOSMIA [None]
  - OEDEMA PERIPHERAL [None]
